FAERS Safety Report 13522412 (Version 3)
Quarter: 2017Q3

REPORT INFORMATION
  Report Type: Spontaneous
  Country: AU (occurrence: AU)
  Receive Date: 20170508
  Receipt Date: 20170713
  Transmission Date: 20171127
  Serious: Yes (Other)
  Sender: FDA-Public Use
  Company Number: AU-ALEXION-A201703842

PATIENT
  Sex: Male

DRUGS (1)
  1. SOLIRIS [Suspect]
     Active Substance: ECULIZUMAB
     Indication: PAROXYSMAL NOCTURNAL HAEMOGLOBINURIA
     Dosage: UNK, Q2W
     Route: 042

REACTIONS (10)
  - Photosensitivity reaction [Unknown]
  - Feeling abnormal [Unknown]
  - Fatigue [Unknown]
  - Blood lactate dehydrogenase increased [Unknown]
  - Blood bilirubin increased [Unknown]
  - Cholecystitis [Unknown]
  - Haemoglobin decreased [Recovering/Resolving]
  - Influenza like illness [Unknown]
  - Myalgia [Unknown]
  - Jaundice [Unknown]

NARRATIVE: CASE EVENT DATE: 201704
